FAERS Safety Report 7132521-5 (Version None)
Quarter: 2010Q4

REPORT INFORMATION
  Report Type: 
  Country: None (occurrence: None)
  Receive Date: 20101202
  Receipt Date: 20101126
  Transmission Date: 20110411
  Serious: Yes (Death)
  Sender: FDA-Public Use
  Company Number: DE-ROCHE-744669

PATIENT
  Sex: Female
  Weight: 68 kg

DRUGS (4)
  1. BEVACIZUMAB [Suspect]
     Dosage: LAST DOSE PRIOR TO SAE: 18 OCT 2010
     Route: 042
     Dates: start: 20100903
  2. OXALIPLATIN [Suspect]
     Dosage: LAST DOSE PRIOR TO SAE: 05 OCT 2010
     Route: 042
     Dates: start: 20100828
  3. FOLINIC ACID [Suspect]
     Dosage: LAST DOSE PRIOR TO SAE: 05 OCT 2010
     Route: 042
     Dates: start: 20100828
  4. 5-FU [Suspect]
     Dosage: LAST DOSE PRIOR TO SAE: 05 OCT 2010
     Route: 042
     Dates: start: 20100828

REACTIONS (1)
  - SEPSIS [None]
